FAERS Safety Report 7954344-7 (Version None)
Quarter: 2011Q4

REPORT INFORMATION
  Report Type: 
  Country: None (occurrence: None)
  Receive Date: 20111202
  Receipt Date: 20111123
  Transmission Date: 20120403
  Serious: Yes (Other)
  Sender: FDA-Public Use
  Company Number: US-JNJFOC-20111111511

PATIENT
  Age: 35 Year
  Sex: Female

DRUGS (4)
  1. BENADRYL [Suspect]
     Route: 065
  2. CLARITIN [Interacting]
     Indication: URTICARIA
     Route: 048
  3. PREDNISONE TAB [Concomitant]
     Indication: PRODUCT USED FOR UNKNOWN INDICATION
     Route: 065
  4. BENADRYL [Suspect]
     Indication: PRODUCT USED FOR UNKNOWN INDICATION
     Route: 065

REACTIONS (4)
  - TREMOR [None]
  - DRUG INTERACTION [None]
  - ANXIETY [None]
  - HALLUCINATION [None]
